FAERS Safety Report 9006071 (Version 2)
Quarter: 2016Q3

REPORT INFORMATION
  Report Type: Spontaneous
  Country: CZ (occurrence: CZ)
  Receive Date: 20130109
  Receipt Date: 20160825
  Transmission Date: 20161109
  Serious: Yes (Other)
  Sender: FDA-Public Use
  Company Number: PHHY2013CZ001923

PATIENT
  Sex: Female

DRUGS (3)
  1. KETONAL [Suspect]
     Active Substance: KETOPROFEN
     Indication: PAIN
     Dosage: UNK
     Route: 051
     Dates: start: 20080227, end: 20080310
  2. HUMALOG [Concomitant]
     Active Substance: INSULIN LISPRO
     Indication: DIABETES MELLITUS
     Route: 065
  3. LOSARTAN. [Concomitant]
     Active Substance: LOSARTAN
     Indication: PRODUCT USED FOR UNKNOWN INDICATION

REACTIONS (10)
  - Pain in extremity [Unknown]
  - Hypotonia [Unknown]
  - General physical health deterioration [Unknown]
  - Spinal disorder [Unknown]
  - Epistaxis [Unknown]
  - Arthralgia [Unknown]
  - Grip strength decreased [Unknown]
  - Thrombosis [Unknown]
  - Haematoma [Unknown]
  - Gait disturbance [Unknown]
